FAERS Safety Report 8258082-5 (Version None)
Quarter: 2012Q2

REPORT INFORMATION
  Report Type: 
  Country: None (occurrence: None)
  Receive Date: 20120404
  Receipt Date: 20120323
  Transmission Date: 20120825
  Serious: Yes (Hospitalization, Other)
  Sender: FDA-Public Use
  Company Number: US-SANOFI-AVENTIS-2012SA020354

PATIENT
  Age: 59 Year
  Sex: Male

DRUGS (14)
  1. FUROSEMIDE [Suspect]
  2. ANTITHROMBOTIC AGENTS [Concomitant]
  3. TORSEMIDE [Suspect]
  4. ASPIRIN [Concomitant]
  5. SPIRONOLACTONE [Suspect]
  6. EZETIMIBE [Concomitant]
  7. NITROGLYCERIN [Concomitant]
  8. ANTITHROMBOTIC AGENTS [Concomitant]
  9. BLINDED THERAPY [Suspect]
     Dates: start: 20110325
  10. CHOLESTEROL- AND TRIGLYCERIDE REDUCERS [Concomitant]
  11. CARVEDILOL [Suspect]
  12. BETA BLOCKING AGENTS [Concomitant]
  13. DIURETICS [Concomitant]
  14. ALL OTHER THERAPEUTIC PRODUCTS [Concomitant]

REACTIONS (2)
  - IRRITABLE BOWEL SYNDROME [None]
  - RENAL FAILURE ACUTE [None]
